FAERS Safety Report 7082893-5 (Version None)
Quarter: 2010Q4

REPORT INFORMATION
  Report Type: 
  Country: None (occurrence: None)
  Receive Date: 20101104
  Receipt Date: 20100622
  Transmission Date: 20110411
  Serious: No
  Sender: FDA-Public Use
  Company Number: US-PFIZER INC-2010078801

PATIENT
  Sex: Male
  Weight: 83.9 kg

DRUGS (6)
  1. VIBRAMYCIN [Suspect]
     Indication: INFECTION
     Dosage: 100 MG, 2X/DAY
     Dates: start: 20100101
  2. VALPROIC ACID [Concomitant]
     Indication: ATTENTION DEFICIT/HYPERACTIVITY DISORDER
     Dosage: 150 MG, 3X/DAY
  3. VALPROIC ACID [Concomitant]
     Indication: EPILEPSY
  4. IMIPRAMINE [Concomitant]
     Indication: ATTENTION DEFICIT/HYPERACTIVITY DISORDER
     Dosage: 50 MG, 1X/DAY
  5. IMIPRAMINE [Concomitant]
     Indication: EPILEPSY
  6. ARMOUR THYROID [Concomitant]
     Indication: THYROID DISORDER
     Dosage: UNK

REACTIONS (1)
  - CHANGE OF BOWEL HABIT [None]
